FAERS Safety Report 9281777 (Version 2)
Quarter: 2013Q4

REPORT INFORMATION
  Report Type: Spontaneous
  Country: US (occurrence: US)
  Receive Date: 20130510
  Receipt Date: 20131011
  Transmission Date: 20140711
  Serious: Yes (Hospitalization, Other)
  Sender: FDA-Public Use
  Company Number: US-B.I. PHARMACEUTICALS,INC./RIDGEFIELD-2013-BI-12709BP

PATIENT
  Age: 82 Year
  Sex: Male
  Weight: 65.77 kg

DRUGS (9)
  1. PRADAXA [Suspect]
     Indication: ANTICOAGULANT THERAPY
     Dosage: 300 MG
     Route: 048
     Dates: start: 20110904, end: 20120326
  2. PRADAXA [Suspect]
     Indication: ATRIAL FIBRILLATION
  3. ATACAND [Concomitant]
     Dosage: 2 MG
  4. CARVEDILOL [Concomitant]
     Dosage: 25 MG
  5. ALDACTONE [Concomitant]
     Dosage: 12.5 MG
  6. DONEPEZIL [Concomitant]
     Dosage: 5 MG
  7. FOLIC ACID [Concomitant]
  8. ZEGERID [Concomitant]
  9. LIPITOR [Concomitant]
     Dosage: 40 MG

REACTIONS (3)
  - Anaemia [Unknown]
  - Erosive oesophagitis [Unknown]
  - Duodenitis [Unknown]
